FAERS Safety Report 6010342-4 (Version None)
Quarter: 2008Q4

REPORT INFORMATION
  Report Type: 
  Country: None (occurrence: None)
  Receive Date: 20081218
  Receipt Date: 20080829
  Transmission Date: 20090506
  Serious: No
  Sender: FDA-Public Use
  Company Number: A0745192A

PATIENT
  Age: 28 Year
  Sex: Female

DRUGS (4)
  1. FLONASE [Suspect]
     Indication: SINUS DISORDER
     Dosage: 2SPR AS REQUIRED
     Route: 045
  2. CLARITIN [Concomitant]
  3. SUDAFED 12 HOUR [Concomitant]
  4. ADVIL LIQUI-GELS [Concomitant]

REACTIONS (1)
  - URTICARIA [None]
